FAERS Safety Report 5983967-X (Version None)
Quarter: 2008Q4

REPORT INFORMATION
  Report Type: 
  Country: None (occurrence: None)
  Receive Date: 20081208
  Receipt Date: 20081125
  Transmission Date: 20090506
  Serious: Yes (Other)
  Sender: FDA-Public Use
  Company Number: JP-ROCHE-597749

PATIENT
  Sex: Female

DRUGS (7)
  1. PEGASYS [Suspect]
     Indication: HEPATITIS C
     Route: 058
     Dates: start: 20080507, end: 20080618
  2. PEGASYS [Suspect]
     Dosage: DECREASED DOSAGE
     Route: 058
     Dates: start: 20080702, end: 20081015
  3. HALCION [Concomitant]
     Route: 048
     Dates: start: 20070627
  4. MYSLEE [Concomitant]
     Route: 048
     Dates: start: 20070808
  5. VITAMEDIN [Concomitant]
     Route: 048
     Dates: start: 20071212
  6. URSO 250 [Concomitant]
     Route: 048
     Dates: start: 20071212
  7. GLAKAY [Concomitant]
     Route: 048
     Dates: start: 20080312

REACTIONS (1)
  - VITH NERVE PARALYSIS [None]
